FAERS Safety Report 6355770-2 (Version None)
Quarter: 2009Q3

REPORT INFORMATION
  Report Type: 
  Country: None (occurrence: None)
  Receive Date: 20090911
  Receipt Date: 20090911
  Transmission Date: 20100115
  Serious: No
  Sender: FDA-Public Use
  Company Number: None

PATIENT
  Age: 62 Year
  Sex: Female
  Weight: 107.0489 kg

DRUGS (1)
  1. ZOCOR [Suspect]
     Indication: BLOOD CHOLESTEROL INCREASED
     Dosage: 20 MG 1 X A DAY  APRIL, MAY, JUNE

REACTIONS (5)
  - MALAISE [None]
  - MUSCLE DISORDER [None]
  - MYALGIA [None]
  - PYREXIA [None]
  - UNEVALUABLE EVENT [None]
